FAERS Safety Report 7753901-0 (Version None)
Quarter: 2011Q3

REPORT INFORMATION
  Report Type: 
  Country: None (occurrence: None)
  Receive Date: 20110915
  Receipt Date: 20110913
  Transmission Date: 20111222
  Serious: Yes (Other)
  Sender: FDA-Public Use
  Company Number: JP-PFIZER INC-2011216077

PATIENT

DRUGS (1)
  1. LYRICA [Suspect]
     Dosage: 75 MG DAILY
     Route: 048

REACTIONS (2)
  - DYSPNOEA [None]
  - PNEUMONIA [None]
